FAERS Safety Report 7673343-6 (Version None)
Quarter: 2011Q3

REPORT INFORMATION
  Report Type: 
  Country: None (occurrence: None)
  Receive Date: 20110804
  Receipt Date: 20110720
  Transmission Date: 20111222
  Serious: Yes (Hospitalization)
  Sender: FDA-Public Use
  Company Number: 2011MA009182

PATIENT
  Age: 14 Year
  Sex: Male

DRUGS (11)
  1. LINEZOLID [Suspect]
     Indication: PNEUMONIA
  2. VINCRISTINE [Suspect]
     Indication: LEUKAEMIA
  3. METHOTREXATE [Suspect]
     Indication: LEUKAEMIA
  4. CYCLOPHOSPHAMIDE [Suspect]
     Indication: LEUKAEMIA
  5. SULFATRIM [Suspect]
     Indication: PNEUMONIA
  6. ALLOPURINOL [Suspect]
     Indication: LEUKAEMIA
  7. CASPOFUNGIN (CASPOFUNGIN) [Suspect]
  8. CYTARABINE [Suspect]
     Indication: LEUKAEMIA
  9. NETILMICIN SULFATE [Suspect]
     Indication: PNEUMONIA
  10. DEXAMETHASONE [Suspect]
     Indication: LEUKAEMIA
  11. ASPARAGINASE (ASPARAGINASE) [Suspect]
     Indication: LEUKAEMIA

REACTIONS (10)
  - DELUSION OF GRANDEUR [None]
  - MANIA [None]
  - IRRITABILITY [None]
  - ABNORMAL BEHAVIOUR [None]
  - PRESSURE OF SPEECH [None]
  - AFFECTIVE DISORDER [None]
  - ELEVATED MOOD [None]
  - FLIGHT OF IDEAS [None]
  - SLEEP DISORDER [None]
  - LOGORRHOEA [None]
